FAERS Safety Report 18667561 (Version 5)
Quarter: 2021Q1

REPORT INFORMATION
  Report Type: Report from Study
  Country: US (occurrence: US)
  Receive Date: 20201228
  Receipt Date: 20210330
  Transmission Date: 20210419
  Serious: No
  Sender: FDA-Public Use
  Company Number: US-B.I. PHARMACEUTICALS,INC./RIDGEFIELD-2020-BI-061772

PATIENT
  Age: 77 Year

DRUGS (4)
  1. OFEV [Suspect]
     Active Substance: NINTEDANIB
     Indication: IDIOPATHIC PULMONARY FIBROSIS
     Dosage: 100 MG BY MOUTH TWICE DAILY
     Route: 048
     Dates: start: 202011, end: 20201217
  2. OFEV [Suspect]
     Active Substance: NINTEDANIB
  3. OFEV [Suspect]
     Active Substance: NINTEDANIB
     Route: 048
  4. OFEV [Suspect]
     Active Substance: NINTEDANIB
     Dosage: 150 MG TWICE DAILY
     Route: 048
     Dates: start: 202012

REACTIONS (13)
  - Headache [Unknown]
  - Decreased appetite [Not Recovered/Not Resolved]
  - Asthenia [Unknown]
  - Fatigue [Not Recovered/Not Resolved]
  - Diarrhoea [Not Recovered/Not Resolved]
  - Intervertebral disc protrusion [Not Recovered/Not Resolved]
  - Illness [Unknown]
  - Back disorder [Unknown]
  - Weight decreased [Not Recovered/Not Resolved]
  - Diarrhoea [Recovered/Resolved with Sequelae]
  - Dehydration [Unknown]
  - Nausea [Recovered/Resolved]
  - Diarrhoea [Unknown]

NARRATIVE: CASE EVENT DATE: 202011
